FAERS Safety Report 6342221-7 (Version None)
Quarter: 2009Q3

REPORT INFORMATION
  Report Type: 
  Country: None (occurrence: None)
  Receive Date: 20090903
  Receipt Date: 20090903
  Transmission Date: 20100115
  Serious: Yes (Other)
  Sender: FDA-Public Use
  Company Number: None

PATIENT
  Sex: Female
  Weight: 93 kg

DRUGS (1)
  1. TOPIRAMATE [Suspect]
     Indication: EPILEPSY
     Dosage: 25MG TABS 1QHS P.O.
     Route: 048
     Dates: start: 20090601

REACTIONS (3)
  - CONVULSION [None]
  - PAROSMIA [None]
  - PRODUCT SUBSTITUTION ISSUE [None]
